FAERS Safety Report 21661951 (Version 2)
Quarter: 2023Q1

REPORT INFORMATION
  Report Type: Report from Study
  Country: US (occurrence: US)
  Receive Date: 20221130
  Receipt Date: 20230131
  Transmission Date: 20230417
  Serious: No
  Sender: FDA-Public Use
  Company Number: US-ABBVIE-4171378

PATIENT
  Sex: Male

DRUGS (1)
  1. HUMIRA [Suspect]
     Active Substance: ADALIMUMAB
     Indication: Uveitis
     Dosage: HUMIRA CF ?FORM STRENGTH: 40 MG
     Route: 058
     Dates: start: 20220618

REACTIONS (2)
  - Rash [Not Recovered/Not Resolved]
  - Eczema [Recovering/Resolving]
